FAERS Safety Report 6030355-6 (Version None)
Quarter: 2009Q1

REPORT INFORMATION
  Report Type: 
  Country: None (occurrence: None)
  Receive Date: 20090107
  Receipt Date: 20080724
  Transmission Date: 20090719
  Serious: No
  Sender: FDA-Public Use
  Company Number: US-BAYER-200813167BCC

PATIENT
  Age: 71 Year
  Sex: Female
  Weight: 52 kg

DRUGS (7)
  1. ALEVE [Suspect]
     Indication: PAIN IN EXTREMITY
     Dosage: TOTAL DAILY DOSE: 220 MG  UNIT DOSE: 220 MG
     Dates: start: 20080723
  2. LITHIUM CARBONATE [Concomitant]
  3. NAMENDA [Concomitant]
  4. SYNTHROID [Concomitant]
  5. METANX [Concomitant]
  6. ZOCOR [Concomitant]
  7. NEURONTIN [Concomitant]

REACTIONS (1)
  - HYPERSOMNIA [None]
